FAERS Safety Report 11995609 (Version 2)
Quarter: 2016Q1

REPORT INFORMATION
  Report Type: Spontaneous
  Country: JP (occurrence: JP)
  Receive Date: 20160203
  Receipt Date: 20160223
  Transmission Date: 20160526
  Serious: Yes (Other)
  Sender: FDA-Public Use
  Company Number: JP-CONCORDIA PHARMACEUTICALS INC.-CO-ZO-JP-2016-011

PATIENT
  Sex: Female

DRUGS (6)
  1. CARBOCISTEINE [Concomitant]
     Active Substance: CARBOCYSTEINE
     Indication: NASOPHARYNGITIS
     Route: 048
     Dates: start: 20150421, end: 20150422
  2. ZONISAMIDE. [Suspect]
     Active Substance: ZONISAMIDE
     Indication: CONVULSION PROPHYLAXIS
     Route: 048
     Dates: start: 20150318, end: 20150422
  3. GASMOTIN [Concomitant]
     Active Substance: MOSAPRIDE CITRATE
     Indication: CHRONIC GASTRITIS
     Route: 048
     Dates: start: 20150403, end: 20150422
  4. ALLEGRA [Concomitant]
     Active Substance: FEXOFENADINE HYDROCHLORIDE
     Indication: RHINITIS ALLERGIC
     Route: 048
     Dates: start: 20150421, end: 20150422
  5. MEDICON [Concomitant]
     Active Substance: DEXTROMETHORPHAN HYDROBROMIDE
     Indication: NASOPHARYNGITIS
     Route: 048
     Dates: start: 20150421, end: 20150422
  6. TSUMURA RIKKUNSHITO EXTRACT GRANULES FOR ETHICAL USE [Concomitant]
     Active Substance: HERBALS
     Indication: CHRONIC GASTRITIS
     Route: 048
     Dates: start: 20150403, end: 20150422

REACTIONS (1)
  - Drug reaction with eosinophilia and systemic symptoms [Recovered/Resolved]

NARRATIVE: CASE EVENT DATE: 2015
